FAERS Safety Report 14320670 (Version 2)
Quarter: 2018Q1

REPORT INFORMATION
  Report Type: Spontaneous
  Country: US (occurrence: US)
  Receive Date: 20171223
  Receipt Date: 20180131
  Transmission Date: 20180509
  Serious: Yes (Other)
  Sender: FDA-Public Use
  Company Number: US-AMGEN-USASP2017186862

PATIENT
  Age: 42 Year
  Sex: Female

DRUGS (4)
  1. IMMUNOGLOBULIN (IMMUNOGLOBULIN HUMAN NORMAL) [Concomitant]
     Active Substance: HUMAN IMMUNOGLOBULIN G
     Dosage: UNK
     Route: 042
     Dates: start: 20171130
  2. NPLATE [Suspect]
     Active Substance: ROMIPLOSTIM
     Indication: IMMUNE THROMBOCYTOPENIC PURPURA
     Dosage: 4 MUG/KG, QWK
     Route: 065
     Dates: start: 2012
  3. NPLATE [Suspect]
     Active Substance: ROMIPLOSTIM
     Dosage: 7 MCG/KG, UNK
     Route: 065
     Dates: start: 20171121
  4. RITUXAN [Concomitant]
     Active Substance: RITUXIMAB

REACTIONS (1)
  - Platelet count abnormal [Not Recovered/Not Resolved]
